FAERS Safety Report 9342700 (Version 1)
Quarter: 2013Q2

REPORT INFORMATION
  Report Type: Spontaneous
  Country: US (occurrence: None)
  Receive Date: 20130607
  Receipt Date: 20130607
  Transmission Date: 20140414
  Serious: Yes (Hospitalization)
  Sender: FDA-Public Use
  Company Number: KAD201305-000679

PATIENT
  Age: 50 Year
  Sex: Male

DRUGS (4)
  1. RIBASPHERE [Suspect]
     Indication: HEPATITIS C
     Route: 048
     Dates: start: 20130218
  2. RITONAVIR [Suspect]
     Indication: HEPATITIS C
     Route: 048
     Dates: start: 20130218
  3. ABT-333 [Suspect]
     Indication: HEPATITIS C
     Route: 048
     Dates: start: 20130218
  4. MULTIVITAMIN (VIGRAN) (ERGOCALCIFEROL, ASCORBIC ACID, PYRIDOXINE HYDROCHLORIDE, THIAMINE HYDROCHLORIDE, RETINOL, RIBOFLAVIN, NICOTINAMIDE, AND CALCIUM PANTOTHENATE) [Concomitant]

REACTIONS (3)
  - Lumbar vertebral fracture [None]
  - Injury [None]
  - Road traffic accident [None]
